FAERS Safety Report 15565503 (Version 1)
Quarter: 2018Q4

REPORT INFORMATION
  Report Type: Report from Study
  Country: US (occurrence: US)
  Receive Date: 20181030
  Receipt Date: 20181030
  Transmission Date: 20190205
  Serious: Yes (Hospitalization)
  Sender: FDA-Public Use
  Company Number: PHEH2018US044981

PATIENT
  Sex: Male

DRUGS (1)
  1. ENTRESTO [Suspect]
     Active Substance: SACUBITRIL\VALSARTAN
     Indication: CARDIAC FAILURE
     Dosage: UNK
     Route: 065
     Dates: start: 20170816, end: 201801

REACTIONS (8)
  - Ventricular tachycardia [Unknown]
  - Coma [Unknown]
  - Fall [Unknown]
  - Hallucination [Unknown]
  - Memory impairment [Unknown]
  - Fracture [Unknown]
  - Dyspnoea [Unknown]
  - Thrombosis [Unknown]
